FAERS Safety Report 24033520 (Version 2)
Quarter: 2024Q3

REPORT INFORMATION
  Report Type: Spontaneous
  Country: ES (occurrence: ES)
  Receive Date: 20240701
  Receipt Date: 20240710
  Transmission Date: 20241017
  Serious: No
  Sender: ROCHE
  Company Number: ES-ROCHE-3495311

PATIENT
  Age: 43 Year
  Sex: Female

DRUGS (1)
  1. RISDIPLAM [Suspect]
     Active Substance: RISDIPLAM
     Indication: Spinal muscular atrophy
     Dosage: 3 ML
     Route: 065
     Dates: start: 20230413

REACTIONS (6)
  - Burning sensation [Unknown]
  - Oropharyngeal pain [Unknown]
  - Dysphagia [Unknown]
  - Sensation of foreign body [Unknown]
  - Dysphonia [Unknown]
  - Rhinorrhoea [Unknown]
